FAERS Safety Report 8353458-X (Version None)
Quarter: 2012Q2

REPORT INFORMATION
  Report Type: 
  Country: None (occurrence: None)
  Receive Date: 20120511
  Receipt Date: 20110322
  Transmission Date: 20120825
  Serious: No
  Sender: FDA-Public Use
  Company Number: US-GLAXOSMITHKLINE-A0920416A

PATIENT
  Sex: Female

DRUGS (2)
  1. HERCEPTIN [Concomitant]
  2. TYKERB [Suspect]
     Indication: PRODUCT USED FOR UNKNOWN INDICATION
     Route: 065
     Dates: start: 20110227

REACTIONS (3)
  - FATIGUE [None]
  - DIARRHOEA [None]
  - NAUSEA [None]
